FAERS Safety Report 11524958 (Version 2)
Quarter: 2015Q4

REPORT INFORMATION
  Report Type: Spontaneous
  Country: US (occurrence: None)
  Receive Date: 20150918
  Receipt Date: 20151012
  Transmission Date: 20160304
  Serious: Yes (Other)
  Sender: FDA-Public Use
  Company Number: US-MDT-ADR-2015-01814

PATIENT
  Age: 35 Year
  Sex: Male

DRUGS (2)
  1. HYDROMORPHONE INTRATHECAL 6 MG/ML [Suspect]
     Active Substance: HYDROMORPHONE
     Dosage: 3.1883 MG/DAY
  2. LIORESAL [Suspect]
     Active Substance: BACLOFEN
     Indication: MUSCLE SPASTICITY
     Dosage: 1062.8 MCG/DAY

REACTIONS (6)
  - Nausea [None]
  - Drug withdrawal syndrome [None]
  - Muscle spasticity [None]
  - Device power source issue [None]
  - Pyrexia [None]
  - Device material issue [None]
